FAERS Safety Report 21179887 (Version 2)
Quarter: 2022Q3

REPORT INFORMATION
  Report Type: Spontaneous
  Country: PA (occurrence: PA)
  Receive Date: 20220805
  Receipt Date: 20220816
  Transmission Date: 20221026
  Serious: No
  Sender: FDA-Public Use
  Company Number: PA-ORGANON-O2208PAN000454

PATIENT
  Sex: Female

DRUGS (1)
  1. ETONOGESTREL [Suspect]
     Active Substance: ETONOGESTREL
     Dosage: 1 IMPLANT
     Route: 059

REACTIONS (3)
  - Complication of device insertion [Unknown]
  - Poor quality device used [Unknown]
  - Product quality issue [Unknown]
